FAERS Safety Report 5771788-2 (Version None)
Quarter: 2008Q2

REPORT INFORMATION
  Report Type: 
  Country: None (occurrence: None)
  Receive Date: 20080601
  Receipt Date: 20080227
  Transmission Date: 20081010
  Serious: No
  Sender: FDA-Public Use
  Company Number: US200802006713

PATIENT
  Age: 51 Year
  Sex: Female

DRUGS (1)
  1. BYETTA [Suspect]
     Indication: TYPE 2 DIABETES MELLITUS
     Dosage: 5 UG, 3/D, SUBCUTANEOUS ; 10 UG, 3/D, SUBCUTANEOUS
     Route: 058
     Dates: start: 20050101

REACTIONS (2)
  - INCORRECT DOSE ADMINISTERED [None]
  - OVERDOSE [None]
